FAERS Safety Report 20811159 (Version 4)
Quarter: 2023Q2

REPORT INFORMATION
  Report Type: Spontaneous
  Country: US (occurrence: US)
  Receive Date: 20220510
  Receipt Date: 20230420
  Transmission Date: 20230721
  Serious: No
  Sender: FDA-Public Use
  Company Number: US-PFIZER INC-202200214921

PATIENT
  Age: 80 Year
  Sex: Female

DRUGS (1)
  1. XELJANZ XR [Suspect]
     Active Substance: TOFACITINIB CITRATE
     Dosage: 11 MG, 1X/DAY

REACTIONS (6)
  - Somnolence [Unknown]
  - Pain [Unknown]
  - Sensitivity to weather change [Unknown]
  - Blood pressure abnormal [Unknown]
  - Swelling [Unknown]
  - Arthritis [Unknown]
